FAERS Safety Report 12972561 (Version 1)
Quarter: 2016Q4

REPORT INFORMATION
  Report Type: Report from Study
  Country: US (occurrence: US)
  Receive Date: 20161124
  Receipt Date: 20161124
  Transmission Date: 20170207
  Serious: No
  Sender: FDA-Public Use
  Company Number: US-PROSTRAKAN-2016-US-0076

PATIENT

DRUGS (2)
  1. SANCUSO [Suspect]
     Active Substance: GRANISETRON
     Indication: DRUG LEVEL
     Dosage: 1 MG OVER 5 MINUTES
     Route: 042
  2. GRANISETRON [Suspect]
     Active Substance: GRANISETRON
     Indication: DRUG LEVEL
     Dosage: 1 PATCH FOR 7 DAYS
     Route: 062
     Dates: start: 20131105, end: 20131111

REACTIONS (8)
  - Headache [None]
  - Headache [Recovered/Resolved]
  - Wrong technique in product usage process [Unknown]
  - Product adhesion issue [Unknown]
  - Constipation [Recovered/Resolved]
  - Application site erythema [Recovered/Resolved]
  - Exposure during pregnancy [Unknown]
  - Constipation [None]

NARRATIVE: CASE EVENT DATE: 20131105
